FAERS Safety Report 6182402-9 (Version None)
Quarter: 2009Q2

REPORT INFORMATION
  Report Type: 
  Country: None (occurrence: None)
  Receive Date: 20090507
  Receipt Date: 20090428
  Transmission Date: 20091009
  Serious: Yes (Other)
  Sender: FDA-Public Use
  Company Number: BR-BAYER-200915656LA

PATIENT
  Age: 47 Year
  Sex: Female
  Weight: 78 kg

DRUGS (1)
  1. MIRENA [Suspect]
     Indication: CONTRACEPTION
     Dosage: FREQUENCY: CONTINUOUSLY
     Route: 015
     Dates: start: 20050101, end: 20090331

REACTIONS (3)
  - ABDOMINAL PAIN LOWER [None]
  - BREAST MASS [None]
  - PELVIC INFECTION [None]
